FAERS Safety Report 9234318 (Version 1)
Quarter: 2013Q1

REPORT INFORMATION
  Report Type: Spontaneous
  Country: US (occurrence: None)
  Receive Date: 20121031
  Receipt Date: 20121031
  Transmission Date: 20140127
  Serious: No
  Sender: FDA-Public Use
  Company Number: PHEH2012US012616

PATIENT
  Sex: Female
  Weight: 72.6 kg

DRUGS (12)
  1. GILENYA [Suspect]
     Indication: MULTIPLE SCLEROSIS
     Route: 048
     Dates: start: 201112, end: 20120625
  2. NEURONTIN (GABAPENTIN) [Concomitant]
  3. BACLOFEN (BACLOFEN) [Concomitant]
  4. BUPROPION (BUPROPION) [Concomitant]
  5. MIRAPEX (PRAMIPEXOLE DIHYDROCHLORIDE) [Concomitant]
  6. MIRTAZAPINE (MIRTAZAPINE) [Concomitant]
  7. MELOXICAM (MELOXICAM) [Concomitant]
  8. ZONISAMIDE (ZONISAMIDE) UNKNOWN [Concomitant]
  9. MAGNESIUM (MAGNESIUM) [Concomitant]
  10. POTASSIUM (POTASSIUM) [Concomitant]
  11. SODIUM (SODIUM) [Concomitant]
  12. PERCOCET [Concomitant]

REACTIONS (6)
  - Fall [None]
  - Rash [None]
  - Muscle spasms [None]
  - Muscular weakness [None]
  - Fatigue [None]
  - Multiple sclerosis [None]
